FAERS Safety Report 10219258 (Version 2)
Quarter: 2014Q2

REPORT INFORMATION
  Report Type: Report from Study
  Country: FR (occurrence: FR)
  Receive Date: 20140605
  Receipt Date: 20140605
  Transmission Date: 20141212
  Serious: Yes (Hospitalization)
  Sender: FDA-Public Use
  Company Number: FR-DSJP-DSM-2013-00726

PATIENT
  Sex: 0

DRUGS (4)
  1. OLMETEC 40 MG [Suspect]
     Indication: HYPERTENSION
     Dosage: 40 MG, QD
     Route: 048
     Dates: start: 201205, end: 20130701
  2. CORDARONE [Concomitant]
     Indication: PRODUCT USED FOR UNKNOWN INDICATION
     Route: 065
  3. PREVISCAN                          /00789001/ [Concomitant]
     Indication: PRODUCT USED FOR UNKNOWN INDICATION
     Dosage: 0.75 TABLET     EVERY
     Route: 065
  4. LEVOTHYROX [Concomitant]
     Indication: PRODUCT USED FOR UNKNOWN INDICATION
     Route: 065

REACTIONS (6)
  - Diarrhoea [Recovered/Resolved]
  - Vomiting [Recovering/Resolving]
  - Weight decreased [Unknown]
  - General physical health deterioration [Recovering/Resolving]
  - Intestinal villi atrophy [Unknown]
  - Abdominal pain [Unknown]
